FAERS Safety Report 8905614 (Version 1)
Quarter: 2012Q4

REPORT INFORMATION
  Report Type: 
  Country: AU (occurrence: AU)
  Receive Date: 20121111
  Receipt Date: 20121111
  Transmission Date: 20130627
  Serious: Yes (Other)
  Sender: FDA-Public Use
  Company Number: PHHY2012AU102966

PATIENT
  Sex: Female

DRUGS (2)
  1. ACLASTA [Suspect]
     Route: 042
  2. ACLASTA [Suspect]
     Route: 042

REACTIONS (20)
  - Blood alkaline phosphatase increased [Recovered/Resolved]
  - Blood lactate dehydrogenase increased [Recovered/Resolved]
  - Gamma-glutamyltransferase increased [Recovered/Resolved]
  - Alanine aminotransferase increased [Recovered/Resolved]
  - White blood cell count increased [Recovered/Resolved]
  - Neutrophil count increased [Recovered/Resolved]
  - Blood bilirubin increased [Recovered/Resolved]
  - Blood sodium decreased [Recovered/Resolved]
  - Red blood cell count decreased [Recovered/Resolved]
  - Haematocrit decreased [Recovered/Resolved]
  - Mean cell volume increased [Recovered/Resolved]
  - Monocyte count increased [Recovered/Resolved]
  - Haemoglobin decreased [Recovered/Resolved]
  - Platelet count increased [Recovered/Resolved]
  - Aspartate aminotransferase increased [Recovered/Resolved]
  - Blood chloride decreased [Recovered/Resolved]
  - Blood phosphorus decreased [Recovered/Resolved]
  - Blood triglycerides increased [Recovered/Resolved]
  - Blood urea decreased [Not Recovered/Not Resolved]
  - Blood phosphorus increased [Recovered/Resolved]
